FAERS Safety Report 13115241 (Version 2)
Quarter: 2017Q1

REPORT INFORMATION
  Report Type: Spontaneous
  Country: US (occurrence: US)
  Receive Date: 20170113
  Receipt Date: 20170113
  Transmission Date: 20170428
  Serious: Yes (Hospitalization)
  Sender: FDA-Public Use
  Company Number: US-ACTELION-A-US2017-148025

PATIENT
  Age: 21 Year
  Sex: Female

DRUGS (11)
  1. OPSUMIT [Suspect]
     Active Substance: MACITENTAN
     Indication: PULMONARY ARTERIAL HYPERTENSION
     Dosage: 10 MG, QD
     Route: 048
     Dates: start: 20160923
  2. POTASSIUM [Concomitant]
     Active Substance: POTASSIUM
  3. TORSEMIDE. [Concomitant]
     Active Substance: TORSEMIDE
  4. ASPIRIN. [Concomitant]
     Active Substance: ASPIRIN
     Dosage: 325 MG, QD
  5. LACTOSE [Concomitant]
     Active Substance: LACTOSE
  6. ADEMPAS [Suspect]
     Active Substance: RIOCIGUAT
     Indication: PRODUCT USED FOR UNKNOWN INDICATION
     Dosage: UNK
     Route: 065
     Dates: start: 201612
  7. DIGOXIN. [Concomitant]
     Active Substance: DIGOXIN
  8. SPIRONOLACTONE. [Concomitant]
     Active Substance: SPIRONOLACTONE
  9. FLOLAN [Concomitant]
     Active Substance: EPOPROSTENOL SODIUM
  10. VELETRI [Suspect]
     Active Substance: EPOPROSTENOL
     Indication: PULMONARY ARTERIAL HYPERTENSION
     Dosage: 48.5 NG/KG, PER MIN
     Route: 042
     Dates: start: 20141205
  11. COUMADIN [Concomitant]
     Active Substance: WARFARIN SODIUM

REACTIONS (5)
  - Gastrointestinal haemorrhage [Unknown]
  - Nausea [Recovered/Resolved]
  - Flushing [Unknown]
  - Vomiting [Recovered/Resolved]
  - Asthenia [Unknown]

NARRATIVE: CASE EVENT DATE: 201612
